FAERS Safety Report 12172703 (Version 1)
Quarter: 2016Q1

REPORT INFORMATION
  Report Type: Spontaneous
  Country: US (occurrence: US)
  Receive Date: 20160311
  Receipt Date: 20160311
  Transmission Date: 20160526
  Serious: Yes (Hospitalization)
  Sender: FDA-Public Use
  Company Number: US-PERRIGO-16US013814

PATIENT
  Age: 35 Year
  Sex: Female
  Weight: 52.15 kg

DRUGS (3)
  1. VITAMINS NOS [Concomitant]
     Active Substance: VITAMINS
     Indication: SUPPLEMENTATION THERAPY
     Dosage: UNK
     Route: 048
  2. MINOXIDIL. [Suspect]
     Active Substance: MINOXIDIL
     Indication: ALOPECIA
     Dosage: 1/4 CAPFUL, SINGLE
     Route: 061
     Dates: start: 20160302, end: 20160302
  3. MINOXIDIL. [Suspect]
     Active Substance: MINOXIDIL
     Dosage: 3/4 CAPFUL, SINGLE
     Route: 061
     Dates: start: 20160211, end: 20160211

REACTIONS (4)
  - Photophobia [Recovering/Resolving]
  - Facial paralysis [Not Recovered/Not Resolved]
  - Ageusia [Recovering/Resolving]
  - Off label use [Recovered/Resolved]

NARRATIVE: CASE EVENT DATE: 20160211
